FAERS Safety Report 21255507 (Version 1)
Quarter: 2022Q3

REPORT INFORMATION
  Report Type: Spontaneous
  Country: GT (occurrence: GT)
  Receive Date: 20220825
  Receipt Date: 20220825
  Transmission Date: 20221027
  Serious: Yes (Other)
  Sender: FDA-Public Use
  Company Number: GT-BAYER-2022A116462

PATIENT
  Age: 64 Year
  Sex: Female

DRUGS (2)
  1. NEXAVAR [Suspect]
     Active Substance: SORAFENIB
     Indication: Salivary gland cancer
     Dosage: 600 MG
     Dates: start: 202101
  2. XARELTO [Concomitant]
     Active Substance: RIVAROXABAN
     Indication: Deep vein thrombosis
     Dosage: 20 MG, QD
     Dates: start: 20210101

REACTIONS (2)
  - Salivary gland cancer [None]
  - Off label use [None]

NARRATIVE: CASE EVENT DATE: 20220801
